FAERS Safety Report 20756735 (Version 1)
Quarter: 2022Q2

REPORT INFORMATION
  Report Type: Spontaneous
  Country: FR (occurrence: FR)
  Receive Date: 20220427
  Receipt Date: 20220427
  Transmission Date: 20220720
  Serious: Yes (Other)
  Sender: FDA-Public Use
  Company Number: FR-PFIZER INC-202200578557

PATIENT
  Age: 52 Year
  Sex: Female

DRUGS (2)
  1. EXEMESTANE [Suspect]
     Active Substance: EXEMESTANE
     Dosage: UNK
  2. GONADORELIN [Concomitant]
     Active Substance: GONADORELIN
     Indication: Hormone therapy

REACTIONS (2)
  - Pelvic venous thrombosis [Unknown]
  - Varicose vein [Unknown]
